FAERS Safety Report 7194130-1 (Version None)
Quarter: 2010Q4

REPORT INFORMATION
  Report Type: 
  Country: None (occurrence: None)
  Receive Date: 20101223
  Receipt Date: 20101006
  Transmission Date: 20110411
  Serious: No
  Sender: FDA-Public Use
  Company Number: US-AMGEN-TCS432488

PATIENT

DRUGS (2)
  1. ENBREL [Suspect]
     Indication: PSORIATIC ARTHROPATHY
     Dosage: 50 MG, Q2WK
     Route: 058
     Dates: start: 20071119
  2. CORTISONE [Concomitant]
     Dosage: UNK UNK, UNK

REACTIONS (1)
  - DRUG EFFECT DECREASED [None]
